FAERS Safety Report 12288072 (Version 1)
Quarter: 2016Q2

REPORT INFORMATION
  Report Type: Spontaneous
  Country: CA (occurrence: CA)
  Receive Date: 20160420
  Receipt Date: 20160420
  Transmission Date: 20160815
  Serious: Yes (Hospitalization)
  Sender: FDA-Public Use
  Company Number: CA-009507513-1604CAN009472

PATIENT
  Age: 53 Year
  Sex: Female
  Weight: 78 kg

DRUGS (10)
  1. DDAVP [Concomitant]
     Active Substance: DESMOPRESSIN ACETATE
     Route: 065
  2. ACETAMINOPHEN. [Concomitant]
     Active Substance: ACETAMINOPHEN
     Route: 065
  3. CORTEF [Concomitant]
     Active Substance: HYDROCORTISONE
     Route: 065
  4. HYDROMORPHONE [Concomitant]
     Active Substance: HYDROMORPHONE
     Route: 065
  5. INTRON A [Suspect]
     Active Substance: INTERFERON ALFA-2B
     Indication: ERDHEIM-CHESTER DISEASE
     Dosage: 3 MILLION IU, TID
     Route: 058
  6. FERROUS SULFATE. [Concomitant]
     Active Substance: FERROUS SULFATE
     Route: 065
  7. ANUSOL HC [Concomitant]
     Active Substance: HYDROCORTISONE
     Route: 065
  8. LORAZEPAM. [Concomitant]
     Active Substance: LORAZEPAM
     Route: 065
  9. SYNTHROID [Concomitant]
     Active Substance: LEVOTHYROXINE SODIUM
     Route: 065
  10. DOCUSATE SODIUM. [Concomitant]
     Active Substance: DOCUSATE SODIUM
     Route: 065

REACTIONS (4)
  - Confusional state [Not Recovered/Not Resolved]
  - Metabolic acidosis [Not Recovered/Not Resolved]
  - Hyperosmolar state [Not Recovered/Not Resolved]
  - Hyperglycaemia [Not Recovered/Not Resolved]
